FAERS Safety Report 5072509-1 (Version None)
Quarter: 2006Q3

REPORT INFORMATION
  Report Type: 
  Country: None (occurrence: None)
  Receive Date: 20060807
  Receipt Date: 20060726
  Transmission Date: 20061208
  Serious: Yes (Other)
  Sender: FDA-Public Use
  Company Number: JP-MERCK-0608USA00067

PATIENT

DRUGS (1)
  1. DECADRON [Suspect]
     Route: 048

REACTIONS (1)
  - GASTRIC PERFORATION [None]
